FAERS Safety Report 4749916-7 (Version None)
Quarter: 2005Q3

REPORT INFORMATION
  Report Type: 
  Country: None (occurrence: None)
  Receive Date: 20050822
  Receipt Date: 20050810
  Transmission Date: 20060218
  Serious: Yes (Other)
  Sender: FDA-Public Use
  Company Number: 2005US001091

PATIENT
  Age: 73 Year
  Sex: Female

DRUGS (10)
  1. ADENOSCAN [Suspect]
     Indication: SCAN MYOCARDIAL PERFUSION
     Dosage: 30.00 MG, UID/QD, IV NOS
     Route: 042
     Dates: start: 20050715, end: 20050715
  2. ISOSORBIDE DINITRATE (ISOSORBIDE DINITRATE0 [Concomitant]
  3. TULOBUTEROL (TULOBUTEROL) [Concomitant]
  4. PILSICAINIDE HYDROCHLORIDE (PILSICAINIDE HYDROCHLORIDE) [Concomitant]
  5. THEOPHYLLINE [Concomitant]
  6. NICORANDIL (NICORANDIL) [Concomitant]
  7. BEZAFIBRATE (BEZAFIBRATE) [Concomitant]
  8. PRAVASTATIN [Concomitant]
  9. ISOSORBIDE MONONITRATE [Concomitant]
  10. AMBROXOL HYDROCHLORIDE( AMBROXOL HYDROCHLORIDE) [Concomitant]

REACTIONS (2)
  - COUGH [None]
  - STRIDOR [None]
